FAERS Safety Report 12151046 (Version 4)
Quarter: 2016Q4

REPORT INFORMATION
  Report Type: Spontaneous
  Country: DE (occurrence: DE)
  Receive Date: 20160304
  Receipt Date: 20161006
  Transmission Date: 20170207
  Serious: Yes (Hospitalization, Other)
  Sender: FDA-Public Use
  Company Number: DE-B.I. PHARMACEUTICALS,INC./RIDGEFIELD-2016-BI-12480DE

PATIENT
  Age: 85 Year
  Sex: Male
  Weight: 85 kg

DRUGS (2)
  1. PRADAXA [Suspect]
     Active Substance: DABIGATRAN ETEXILATE MESYLATE
     Indication: CEREBROVASCULAR ACCIDENT PROPHYLAXIS
  2. PRADAXA [Suspect]
     Active Substance: DABIGATRAN ETEXILATE MESYLATE
     Indication: ATRIAL FIBRILLATION
     Route: 048

REACTIONS (15)
  - Confusional state [Unknown]
  - Disorientation [Unknown]
  - C-reactive protein increased [Unknown]
  - Stenosis [Unknown]
  - Body temperature increased [Unknown]
  - Central nervous system infection [Unknown]
  - Cerebral infarction [Unknown]
  - Laryngitis [Unknown]
  - Disturbance in attention [Unknown]
  - Aphasia [Unknown]
  - Encephalitis [Unknown]
  - Cerebrovascular accident [Unknown]
  - Cerebral disorder [Unknown]
  - Pleocytosis [Unknown]
  - Aphasia [Unknown]

NARRATIVE: CASE EVENT DATE: 201602
